FAERS Safety Report 4544001-1 (Version None)
Quarter: 2005Q1

REPORT INFORMATION
  Report Type: 
  Country: None (occurrence: None)
  Receive Date: 20041223
  Receipt Date: 20041112
  Transmission Date: 20050727
  Serious: No
  Sender: FDA-Public Use
  Company Number: US-JNJFOC-20041103797

PATIENT
  Age: 36 Year
  Sex: Female
  Weight: 61.2356 kg

DRUGS (2)
  1. ORTHO EVRA [Suspect]
     Indication: CONTRACEPTION
     Dosage: 1 DOSE(S) 3 IN 4 WEEK TRANSDERMAL
     Route: 062
     Dates: end: 20041010
  2. PROZAC [Concomitant]

REACTIONS (5)
  - AMENORRHOEA [None]
  - HEADACHE [None]
  - HOT FLUSH [None]
  - WEIGHT DECREASED [None]
  - WITHDRAWAL BLEED [None]
